FAERS Safety Report 24823396 (Version 1)
Quarter: 2025Q1

REPORT INFORMATION
  Report Type: Spontaneous
  Country: FR (occurrence: FR)
  Receive Date: 20250109
  Receipt Date: 20250109
  Transmission Date: 20250409
  Serious: Yes (Hospitalization, Other)
  Sender: CHEPLAPHARM
  Company Number: None

PATIENT
  Age: 71 Year
  Sex: Male
  Weight: 78.8 kg

DRUGS (12)
  1. OLANZAPINE [Suspect]
     Active Substance: OLANZAPINE
     Indication: Psychotic disorder
     Dosage: LONG-TERM TREATMENT REGULARLY INTERRUPTED AND RESUMED, DOSES FLUCTUATING . OVER TIME. GENERALLY D...
     Route: 048
     Dates: start: 19940101
  2. CYAMEMAZINE [Suspect]
     Active Substance: CYAMEMAZINE
     Indication: Psychotic disorder
     Dosage: 1/2 IN THE EVENING?DAILY DOSE: 0.5 DOSAGE FORM
     Route: 048
     Dates: start: 20240801
  3. KARDEGIC [Concomitant]
     Active Substance: ASPIRIN DL-LYSINE
     Indication: Cardiovascular event prophylaxis
     Dosage: ORAL SOLUTION IN SACHET?DAILY DOSE: 1 DOSAGE FORM
     Route: 048
  4. HYDROCHLOROTHIAZIDE\LOSARTAN POTASSIUM [Concomitant]
     Active Substance: HYDROCHLOROTHIAZIDE\LOSARTAN POTASSIUM
     Indication: Hypertension
     Dosage: 100/25MG?DAILY DOSE: 1 DOSAGE FORM
     Route: 048
  5. ATENOLOL [Concomitant]
     Active Substance: ATENOLOL
     Indication: Hypertension
     Dosage: DAILY DOSE: 2 DOSAGE FORM
     Route: 048
  6. MOXONIDINE [Concomitant]
     Active Substance: MOXONIDINE
     Indication: Hypertension
     Dosage: DAILY DOSE: 0.2 MILLIGRAM
     Route: 048
  7. ATORVASTATIN [Concomitant]
     Active Substance: ATORVASTATIN
     Indication: Dyslipidaemia
     Dosage: DAILY DOSE: 10 MILLIGRAM
     Route: 048
  8. POTASSIUM CHLORIDE [Concomitant]
     Active Substance: POTASSIUM CHLORIDE
     Indication: Hypokalaemia
     Dosage: DAILY DOSE: 1 DOSAGE FORM
     Route: 048
  9. HERBALS\SAW PALMETTO [Concomitant]
     Active Substance: HERBALS\SAW PALMETTO
     Indication: Prostatic adenoma
     Dosage: DAILY DOSE: 2 DOSAGE FORM
     Route: 048
  10. LORAZEPAM [Concomitant]
     Active Substance: LORAZEPAM
     Indication: Anxiety
     Dosage: DAILY DOSE: 2.5 DOSAGE FORM
     Route: 048
  11. LACTULOSE [Concomitant]
     Active Substance: LACTULOSE
     Indication: Constipation
     Dosage: DAILY DOSE: 1 DOSAGE FORM
     Route: 048
  12. GINKGO [Concomitant]
     Active Substance: GINKGO
     Indication: Peripheral venous disease
     Dosage: DAILY DOSE: 3 DOSAGE FORM
     Route: 048

REACTIONS (3)
  - Pulmonary embolism [Recovering/Resolving]
  - Atrial fibrillation [Unknown]
  - Deep vein thrombosis [Unknown]

NARRATIVE: CASE EVENT DATE: 20241015
